FAERS Safety Report 11363466 (Version 1)
Quarter: 2015Q3

REPORT INFORMATION
  Report Type: Spontaneous
  Country: BR (occurrence: BR)
  Receive Date: 20150811
  Receipt Date: 20150811
  Transmission Date: 20151125
  Serious: Yes (Hospitalization)
  Sender: FDA-Public Use
  Company Number: BR-ROCHE-1618201

PATIENT
  Sex: Male
  Weight: 48 kg

DRUGS (1)
  1. ZELBORAF [Suspect]
     Active Substance: VEMURAFENIB
     Indication: MALIGNANT MELANOMA
     Route: 048
     Dates: start: 20150710

REACTIONS (4)
  - Vomiting [Recovered/Resolved]
  - Mobility decreased [Recovered/Resolved]
  - Arrhythmia [Recovered/Resolved]
  - Hepatic pain [Recovered/Resolved]
